FAERS Safety Report 10441471 (Version 1)
Quarter: 2014Q3

REPORT INFORMATION
  Report Type: Spontaneous
  Country: US (occurrence: None)
  Receive Date: 20140908
  Receipt Date: 20140908
  Transmission Date: 20150326
  Serious: No
  Sender: FDA-Public Use
  Company Number: None

PATIENT
  Age: 38 Year
  Sex: Female
  Weight: 56.7 kg

DRUGS (1)
  1. FLUOXETINE [Suspect]
     Active Substance: FLUOXETINE\FLUOXETINE HYDROCHLORIDE
     Indication: PREMENSTRUAL DYSPHORIC DISORDER
     Dosage: 20 MG 1 PILL ONCE DAILY TAKEN BY MOUTH
     Route: 048
     Dates: start: 20140714, end: 20140904

REACTIONS (3)
  - Gastrooesophageal reflux disease [None]
  - Drug ineffective [None]
  - Dyspepsia [None]

NARRATIVE: CASE EVENT DATE: 20140904
